FAERS Safety Report 14903462 (Version 1)
Quarter: 2018Q2

REPORT INFORMATION
  Report Type: Spontaneous
  Country: IT (occurrence: IT)
  Receive Date: 20180516
  Receipt Date: 20180516
  Transmission Date: 20180711
  Serious: Yes (Other)
  Sender: FDA-Public Use
  Company Number: PHHY2018IT003764

PATIENT
  Age: 20 Year
  Sex: Male
  Weight: 40 kg

DRUGS (1)
  1. PREDNISONE. [Suspect]
     Active Substance: PREDNISONE
     Indication: DUCHENNE MUSCULAR DYSTROPHY
     Dosage: 5 MG, QD
     Route: 065

REACTIONS (8)
  - Spinal fracture [Unknown]
  - Muscle atrophy [Unknown]
  - Back pain [Recovered/Resolved]
  - Joint range of motion decreased [Unknown]
  - Bone density decreased [Recovering/Resolving]
  - Kyphoscoliosis [Unknown]
  - Concomitant disease aggravated [Unknown]
  - Product use in unapproved indication [Unknown]
